FAERS Safety Report 9911236 (Version 3)
Quarter: 2014Q1

REPORT INFORMATION
  Report Type: Report from Study
  Country: CA (occurrence: CA)
  Receive Date: 20140219
  Receipt Date: 20140318
  Transmission Date: 20141002
  Serious: Yes (Other)
  Sender: FDA-Public Use
  Company Number: CA-BRISTOL-MYERS SQUIBB COMPANY-19481407

PATIENT
  Age: 61 Year
  Sex: Female

DRUGS (11)
  1. ORENCIA [Suspect]
     Indication: RHEUMATOID ARTHRITIS
     Dosage: INTERRUPTED ON 15NOV2013?EXP:JUL16?LOT#3E73716?EXP:MAR2016?DOSE: 1000 UNIT NOS
     Dates: start: 20100603
  2. PLAQUENIL [Concomitant]
  3. METHOTREXATE [Concomitant]
  4. ACTEMRA [Concomitant]
  5. CELEBREX [Concomitant]
  6. FOLIC ACID [Concomitant]
  7. METFORMIN [Concomitant]
  8. VITAMIN D [Concomitant]
  9. TRAZODONE HCL [Concomitant]
  10. CALCIUM [Concomitant]
  11. FENTANYL [Concomitant]

REACTIONS (10)
  - Gallbladder disorder [Unknown]
  - Muscle atrophy [Unknown]
  - Product quality issue [Recovered/Resolved]
  - Lower respiratory tract infection [Unknown]
  - Arthralgia [Unknown]
  - Pain in extremity [Unknown]
  - Joint swelling [Unknown]
  - Nausea [Recovering/Resolving]
  - Headache [Recovering/Resolving]
  - Chills [Recovering/Resolving]
